FAERS Safety Report 4536585-4 (Version None)
Quarter: 2004Q4

REPORT INFORMATION
  Report Type: 
  Country: None (occurrence: None)
  Receive Date: 20041223
  Receipt Date: 20041216
  Transmission Date: 20050328
  Serious: Yes (Other)
  Sender: FDA-Public Use
  Company Number: US-JNJFOC-20041204839

PATIENT
  Sex: Male
  Weight: 74.39 kg

DRUGS (5)
  1. ULTRACET [Suspect]
     Indication: BACK PAIN
     Route: 049
  2. NORVASC [Concomitant]
  3. AMITRIPTYLINE HCL [Concomitant]
  4. VALDECOXIB [Concomitant]
  5. ANTI SEIZURE MEDICATION [Concomitant]

REACTIONS (1)
  - CEREBROVASCULAR ACCIDENT [None]
